FAERS Safety Report 18836490 (Version 1)
Quarter: 2021Q1

REPORT INFORMATION
  Report Type: Spontaneous
  Country: RU (occurrence: RU)
  Receive Date: 20210203
  Receipt Date: 20210203
  Transmission Date: 20210419
  Serious: Yes (Life-Threatening)
  Sender: FDA-Public Use
  Company Number: RU-009507513-2101RUS012530

PATIENT
  Age: 82 Year
  Sex: Female

DRUGS (2)
  1. LIDOCAINE. [Suspect]
     Active Substance: LIDOCAINE
     Indication: PERIARTHRITIS
     Dosage: 2 MILLILITER, ONCE
     Dates: start: 20200827, end: 20200827
  2. DIPROSPAN [Suspect]
     Active Substance: BETAMETHASONE DIPROPIONATE\BETAMETHASONE SODIUM PHOSPHATE
     Indication: PERIARTHRITIS
     Dosage: 1 MILLILITER, ONCE
     Dates: start: 20200827, end: 20200827

REACTIONS (4)
  - Dyspnoea [Recovered/Resolved]
  - Incorrect route of product administration [Unknown]
  - Swelling of eyelid [Recovering/Resolving]
  - Lip swelling [Recovering/Resolving]

NARRATIVE: CASE EVENT DATE: 20200827
